FAERS Safety Report 9493481 (Version 1)
Quarter: 2013Q3

REPORT INFORMATION
  Report Type: Spontaneous
  Country: CA (occurrence: CA)
  Receive Date: 20130902
  Receipt Date: 20130902
  Transmission Date: 20140515
  Serious: Yes (Other)
  Sender: FDA-Public Use
  Company Number: CA-ROCHE-1269017

PATIENT
  Age: 67 Year
  Sex: Male

DRUGS (1)
  1. ROCEPHIN [Suspect]
     Indication: PRODUCT USED FOR UNKNOWN INDICATION
     Dosage: THERAPY DURATION: 1.0 DAYS
     Route: 042

REACTIONS (2)
  - Blister [Not Recovered/Not Resolved]
  - Urticaria [Not Recovered/Not Resolved]
